FAERS Safety Report 9856119 (Version 2)
Quarter: 2014Q2

REPORT INFORMATION
  Report Type: Spontaneous
  Country: US (occurrence: US)
  Receive Date: 20140130
  Receipt Date: 20140404
  Transmission Date: 20141212
  Serious: No
  Sender: FDA-Public Use
  Company Number: US-009507513-1401USA007255

PATIENT
  Age: 23 Year
  Sex: Female
  Weight: 122.45 kg

DRUGS (1)
  1. IMPLANON [Suspect]
     Indication: CONTRACEPTION
     Dosage: 1 DF, UNK
     Route: 058
     Dates: start: 20111017, end: 20140107

REACTIONS (2)
  - Device kink [Unknown]
  - Device breakage [Recovered/Resolved]
